FAERS Safety Report 8780733 (Version 2)
Quarter: 2012Q4

REPORT INFORMATION
  Report Type: Report from Study
  Country: US (occurrence: US)
  Receive Date: 20120910
  Receipt Date: 20121115
  Transmission Date: 20130627
  Serious: Yes (Hospitalization)
  Sender: FDA-Public Use
  Company Number: US-ELI_LILLY_AND_COMPANY-US201209000349

PATIENT
  Age: 74 Year
  Sex: Male
  Weight: 42.54 kg

DRUGS (16)
  1. PEMETREXED [Suspect]
     Indication: NON-SMALL CELL LUNG CANCER
     Dosage: 500 mg/m2, other
     Route: 042
     Dates: start: 20111209, end: 20120215
  2. PEMETREXED [Suspect]
     Dosage: 500 mg/m2, other
     Route: 042
     Dates: start: 20120307, end: 20120821
  3. CARBOPLATIN [Suspect]
     Indication: NON-SMALL CELL LUNG CANCER
     Dosage: 6 DF, other
     Route: 042
     Dates: start: 20111209, end: 20120215
  4. FOLIC ACID [Concomitant]
     Indication: PROPHYLAXIS
     Dosage: UNK
     Dates: start: 20111205
  5. VITAMIN B12 [Concomitant]
     Indication: PROPHYLAXIS
     Dosage: UNK
     Dates: start: 20111205
  6. PROMETHAZINE [Concomitant]
     Indication: NAUSEA
     Dosage: UNK
     Dates: start: 20111209
  7. OXYCODONE [Concomitant]
     Indication: PAIN
     Dosage: UNK
     Dates: start: 20111129
  8. DEXAMETHASONE [Concomitant]
     Indication: PROPHYLAXIS
     Dosage: UNK
     Dates: start: 20111208
  9. DURAGESIC [Concomitant]
     Indication: PAIN
     Dosage: 25 ug, every 72 hours
     Route: 061
     Dates: start: 20120114
  10. OMEPRAZOLE [Concomitant]
     Indication: GASTROOESOPHAGEAL REFLUX DISEASE
     Dosage: UNK
     Dates: start: 20120509
  11. CRESTOR [Concomitant]
     Indication: HYPERCHOLESTEROLAEMIA
     Dosage: 10 mg, qd
     Route: 048
     Dates: start: 2009
  12. ZOMETA [Concomitant]
     Indication: METASTASES TO BONE
     Dosage: UNK
     Dates: start: 20111209
  13. OXYGEN [Concomitant]
     Indication: HYPOXIA
     Dosage: 2 l, per minute via nasal cannula
     Dates: start: 20120807
  14. DUONEB [Concomitant]
     Indication: LUNG INFILTRATION
     Dosage: UNK
     Dates: start: 20120728
  15. TRAZODONE [Concomitant]
     Indication: INSOMNIA
     Dosage: UNK
     Dates: start: 20120821
  16. XOPENEX HFA [Concomitant]
     Indication: CHRONIC OBSTRUCTIVE PULMONARY DISEASE
     Dosage: nebulizer

REACTIONS (2)
  - Respiratory failure [Not Recovered/Not Resolved]
  - Haemoglobin decreased [Recovered/Resolved]
